FAERS Safety Report 6182154-2 (Version None)
Quarter: 2009Q2

REPORT INFORMATION
  Report Type: 
  Country: None (occurrence: None)
  Receive Date: 20090507
  Receipt Date: 20090427
  Transmission Date: 20091009
  Serious: Yes (Other)
  Sender: FDA-Public Use
  Company Number: GB-JNJFOC-20070803935

PATIENT
  Sex: Male
  Weight: 89 kg

DRUGS (5)
  1. REMICADE [Suspect]
     Indication: RHEUMATOID ARTHRITIS
     Route: 042
  2. METHOTREXATE [Concomitant]
  3. CELECOXIB [Concomitant]
  4. FOLIC ACID [Concomitant]
  5. OMEPRAZOLE [Concomitant]

REACTIONS (2)
  - BASAL CELL CARCINOMA [None]
  - SQUAMOUS CELL CARCINOMA [None]
